FAERS Safety Report 15004767 (Version 1)
Quarter: 2018Q2

REPORT INFORMATION
  Report Type: Report from Study
  Country: ES (occurrence: ES)
  Receive Date: 20180613
  Receipt Date: 20180613
  Transmission Date: 20180711
  Serious: Yes (Hospitalization)
  Sender: FDA-Public Use
  Company Number: ES-TEVA-2018-ES-906343

PATIENT
  Age: 3 Year
  Sex: Female

DRUGS (6)
  1. VINCRISTINA (809A) [Suspect]
     Active Substance: VINCRISTINE SULFATE
     Indication: NEUROBLASTOMA
     Dosage: .15 MILLIGRAM DAILY; 0.15 MG CADA 24 HOURS IN CONTINUOUS INFUSION
     Route: 042
     Dates: start: 20161228, end: 20161230
  2. CICLOFOSFAMIDA (120A) [Suspect]
     Active Substance: CYCLOPHOSPHAMIDE
     Indication: NEUROBLASTOMA
     Dosage: 46.7 MG/KG DAILY;
     Route: 042
     Dates: start: 20161228, end: 20161229
  3. ONDANSETRON (2575A) [Concomitant]
     Active Substance: ONDANSETRON
     Dosage: 2.5 MG CADA 8 HOURS
     Dates: start: 20161228
  4. MESNA (1078A) [Concomitant]
     Active Substance: MESNA
     Dosage: 200 MILLIGRAM DAILY; 200 MG CADA 24 HOURS
     Dates: start: 20161228, end: 20161229
  5. RANITIDINA (2A) [Concomitant]
     Active Substance: RANITIDINE
     Dosage: 15 MG CADA 6 HOURS
     Dates: start: 20161227
  6. DOXORUBICINA (202A) [Suspect]
     Active Substance: DOXORUBICIN HYDROCHLORIDE
     Dosage: 8 MILLIGRAM DAILY; 8 MG CADA 24 HOURS IN CONTINUOUS INFUSION (0.83 MG / KG / D)
     Route: 041
     Dates: start: 20161228, end: 20161230

REACTIONS (1)
  - Pancreatitis acute [Recovered/Resolved]

NARRATIVE: CASE EVENT DATE: 20170106
